FAERS Safety Report 9090176 (Version 1)
Quarter: 2013Q1

REPORT INFORMATION
  Report Type: Spontaneous
  Country: US (occurrence: US)
  Receive Date: 20130131
  Receipt Date: 20130131
  Transmission Date: 20140127
  Serious: Yes (Hospitalization, Other)
  Sender: FDA-Public Use
  Company Number: US-009507513-1301USA014284

PATIENT
  Sex: Female

DRUGS (9)
  1. SINGULAIR [Suspect]
  2. ASPIRIN [Concomitant]
  3. FINASTERIDE [Concomitant]
  4. ZOLPIDEM TARTRATE [Concomitant]
  5. CEPHALEXIN [Concomitant]
  6. HYDROCHLOROTHIAZIDE [Concomitant]
  7. ACETAMINOPHEN (+) HYDROCODONE BITARTRATE [Concomitant]
  8. ACETAMINOPHEN [Concomitant]
  9. STUDY DRUG (UNSPECIFIED) [Concomitant]

REACTIONS (1)
  - Suicide attempt [Unknown]
